FAERS Safety Report 15795443 (Version 1)
Quarter: 2019Q1

REPORT INFORMATION
  Report Type: Spontaneous
  Country: US (occurrence: US)
  Receive Date: 20190107
  Receipt Date: 20190107
  Transmission Date: 20190417
  Serious: Yes (Other)
  Sender: FDA-Public Use
  Company Number: US-COOPERSURGICAL, INC.-US-2018CPS034166

PATIENT

DRUGS (1)
  1. PARAGARD T 380A [Suspect]
     Active Substance: COPPER
     Indication: PRODUCT USED FOR UNKNOWN INDICATION
     Dosage: UNK
     Route: 015
     Dates: start: 20100216, end: 20180807

REACTIONS (10)
  - Complication of device removal [Unknown]
  - Foreign body in reproductive tract [Unknown]
  - Muscle spasms [Unknown]
  - Dysmenorrhoea [Unknown]
  - Sexual dysfunction [Unknown]
  - Menorrhagia [Unknown]
  - Infertility [Unknown]
  - Device breakage [Unknown]
  - Emotional distress [Unknown]
  - Anxiety [Unknown]

NARRATIVE: CASE EVENT DATE: 20180807
